FAERS Safety Report 20744862 (Version 3)
Quarter: 2022Q2

REPORT INFORMATION
  Report Type: Spontaneous
  Country: US (occurrence: US)
  Receive Date: 20220425
  Receipt Date: 20220511
  Transmission Date: 20220720
  Serious: Yes (Hospitalization)
  Sender: FDA-Public Use
  Company Number: US-PFIZER INC-2020209978

PATIENT
  Age: 35 Year
  Sex: Male
  Weight: 54.422 kg

DRUGS (3)
  1. ZARONTIN [Suspect]
     Active Substance: ETHOSUXIMIDE
     Indication: Lennox-Gastaut syndrome
     Dosage: UNK (STRENGTH: 250MG PER 5 ML.)
  2. ZARONTIN [Suspect]
     Active Substance: ETHOSUXIMIDE
     Indication: Seizure
     Dosage: UNK (25MG PER 5ML)
     Route: 048
  3. ZARONTIN [Suspect]
     Active Substance: ETHOSUXIMIDE
     Dosage: UNK (250 MG/ 5 CC)
     Route: 048
     Dates: start: 1990

REACTIONS (2)
  - Status epilepticus [Unknown]
  - Off label use [Unknown]

NARRATIVE: CASE EVENT DATE: 20220401
